FAERS Safety Report 7205925-X (Version None)
Quarter: 2011Q1

REPORT INFORMATION
  Report Type: 
  Country: None (occurrence: None)
  Receive Date: 20110103
  Receipt Date: 20101224
  Transmission Date: 20110831
  Serious: Yes (Other)
  Sender: FDA-Public Use
  Company Number: JP-SP-2010-07105

PATIENT
  Age: 77 Year
  Sex: Male

DRUGS (1)
  1. IMMUCYST [Suspect]
     Indication: BLADDER CANCER
     Dosage: UNKNOWN
     Route: 043
     Dates: start: 20101217, end: 20101217

REACTIONS (1)
  - BOVINE TUBERCULOSIS [None]
